FAERS Safety Report 26216932 (Version 1)
Quarter: 2025Q4

REPORT INFORMATION
  Report Type: Spontaneous
  Country: GB (occurrence: GB)
  Receive Date: 20251231
  Receipt Date: 20251231
  Transmission Date: 20260118
  Serious: Yes (Other)
  Sender: HIKMA
  Company Number: None

PATIENT
  Age: 64 Year
  Sex: Female

DRUGS (2)
  1. FLUCONAZOLE [Suspect]
     Active Substance: FLUCONAZOLE
     Indication: Oral candidiasis
     Dosage: 200 MILLIGRAM
     Route: 065
     Dates: start: 20251215, end: 20251216
  2. LANSOPRAZOLE [Concomitant]
     Active Substance: LANSOPRAZOLE
     Indication: Gastrooesophageal reflux disease
     Dosage: UNKNOWN
     Route: 065

REACTIONS (4)
  - Muscle spasms [Recovering/Resolving]
  - Retching [Unknown]
  - Choking sensation [Unknown]
  - Anxiety [Unknown]

NARRATIVE: CASE EVENT DATE: 20251215
